FAERS Safety Report 7408611-6 (Version None)
Quarter: 2011Q2

REPORT INFORMATION
  Report Type: 
  Country: None (occurrence: None)
  Receive Date: 20110412
  Receipt Date: 20110329
  Transmission Date: 20111010
  Serious: Yes (Other)
  Sender: FDA-Public Use
  Company Number: PHHY2011PK27742

PATIENT
  Age: 79 Year
  Sex: Female
  Weight: 60 kg

DRUGS (3)
  1. ANTIHYPERTENSIVE DRUGS [Concomitant]
     Indication: HYPERTENSION
     Route: 048
  2. CALCIUM [Concomitant]
     Indication: OSTEOPOROSIS
     Route: 048
  3. ACLASTA [Suspect]
     Indication: OSTEOPOROSIS
     Dosage: 5 MG, YEARLY
     Route: 042
     Dates: start: 20100403

REACTIONS (1)
  - CONVULSION [None]
